FAERS Safety Report 6265965-4 (Version None)
Quarter: 2009Q3

REPORT INFORMATION
  Report Type: 
  Country: None (occurrence: None)
  Receive Date: 20090713
  Receipt Date: 20090707
  Transmission Date: 20100115
  Serious: Yes (Other)
  Sender: FDA-Public Use
  Company Number: US-JNJFOC-20080901876

PATIENT
  Sex: Female
  Weight: 68.49 kg

DRUGS (8)
  1. DURAGESIC-100 [Suspect]
     Route: 062
  2. DURAGESIC-100 [Suspect]
     Route: 062
  3. DURAGESIC-100 [Suspect]
     Route: 062
  4. DURAGESIC-100 [Suspect]
     Indication: PAIN
     Route: 062
  5. FENTANYL TRANSDERMAL SYSTEM [Suspect]
     Indication: PAIN
     Route: 062
  6. ALPRAZOLAM [Concomitant]
     Indication: ANXIETY
     Route: 048
  7. LYRICA [Concomitant]
     Indication: PAIN
     Route: 048
  8. TALWIN [Concomitant]
     Indication: PAIN
     Route: 048

REACTIONS (9)
  - DEPRESSION [None]
  - DRUG INEFFECTIVE [None]
  - HERPES ZOSTER OTICUS [None]
  - INADEQUATE ANALGESIA [None]
  - INAPPROPRIATE SCHEDULE OF DRUG ADMINISTRATION [None]
  - LOSS OF CONSCIOUSNESS [None]
  - PRODUCT QUALITY ISSUE [None]
  - THERAPEUTIC RESPONSE INCREASED [None]
  - WRONG TECHNIQUE IN DRUG USAGE PROCESS [None]
